FAERS Safety Report 19027505 (Version 1)
Quarter: 2021Q1

REPORT INFORMATION
  Report Type: Spontaneous
  Country: CA (occurrence: CA)
  Receive Date: 20210319
  Receipt Date: 20210319
  Transmission Date: 20210420
  Serious: Yes (Disabling)
  Sender: FDA-Public Use
  Company Number: CA-TEVA-2021-CA-1890695

PATIENT
  Age: 64 Year
  Sex: Female

DRUGS (5)
  1. ACYCLOVIR SODIUM. [Suspect]
     Active Substance: ACYCLOVIR SODIUM
     Indication: ANTIVIRAL PROPHYLAXIS
     Route: 065
  2. VALTREX [Suspect]
     Active Substance: VALACYCLOVIR HYDROCHLORIDE
     Indication: PROPHYLAXIS
     Route: 065
  3. GANCICLOVIR. [Suspect]
     Active Substance: GANCICLOVIR
     Indication: ANTIVIRAL TREATMENT
     Dosage: FOR SOLUTION INTRAVENOUS
     Route: 042
  4. VALGANCICLOVIR HYDROCHLORIDE. [Suspect]
     Active Substance: VALGANCICLOVIR HYDROCHLORIDE
     Indication: ANTIVIRAL TREATMENT
     Dosage: 1800 MG/KG DAILY;
     Route: 048
  5. FOSCARNET SODIUM. [Suspect]
     Active Substance: FOSCARNET SODIUM
     Indication: ANTIVIRAL TREATMENT
     Route: 042

REACTIONS (4)
  - Cytomegalovirus infection [Not Recovered/Not Resolved]
  - Pathogen resistance [Not Recovered/Not Resolved]
  - Encephalitis cytomegalovirus [Not Recovered/Not Resolved]
  - Cytomegalovirus viraemia [Not Recovered/Not Resolved]
